FAERS Safety Report 8107422-6 (Version None)
Quarter: 2012Q1

REPORT INFORMATION
  Report Type: 
  Country: None (occurrence: None)
  Receive Date: 20120202
  Receipt Date: 20120124
  Transmission Date: 20120608
  Serious: Yes (Hospitalization)
  Sender: FDA-Public Use
  Company Number: DE-ELI_LILLY_AND_COMPANY-DE201201008241

PATIENT
  Sex: Male
  Weight: 89 kg

DRUGS (2)
  1. EFFIENT [Suspect]
     Indication: PERCUTANEOUS CORONARY INTERVENTION
     Dosage: 60 MG, LOADING DOSE
     Dates: start: 20110404
  2. EFFIENT [Suspect]
     Dosage: UNK, UNKNOWN

REACTIONS (1)
  - ACUTE MYOCARDIAL INFARCTION [None]
